FAERS Safety Report 20830289 (Version 1)
Quarter: 2022Q2

REPORT INFORMATION
  Report Type: Spontaneous
  Country: MX (occurrence: MX)
  Receive Date: 20220514
  Receipt Date: 20220514
  Transmission Date: 20220721
  Serious: Yes (Hospitalization, Other)
  Sender: FDA-Public Use
  Company Number: MX-AMGEN-MEXSP2022078687

PATIENT
  Age: 21 Year
  Sex: Female

DRUGS (15)
  1. FILGRASTIM [Suspect]
     Active Substance: FILGRASTIM
     Indication: Autologous haematopoietic stem cell transplant
     Dosage: 10 MICROGRAM/KILOGRAM, QD
     Route: 065
  2. METHOTREXATE [Concomitant]
     Active Substance: METHOTREXATE
  3. ETANERCEPT [Concomitant]
     Active Substance: ETANERCEPT
     Indication: Still^s disease
     Dosage: UNK
     Route: 065
  4. ABATACEPT [Concomitant]
     Active Substance: ABATACEPT
  5. ADALIMUMAB [Concomitant]
     Active Substance: ADALIMUMAB
  6. RITUXIMAB [Concomitant]
     Active Substance: RITUXIMAB
  7. GOLIMUMAB [Concomitant]
     Active Substance: GOLIMUMAB
  8. TOFACITINIB [Concomitant]
     Active Substance: TOFACITINIB
  9. PREDNISONE [Concomitant]
     Active Substance: PREDNISONE
  10. CYCLOPHOSPHAMIDE [Concomitant]
     Active Substance: CYCLOPHOSPHAMIDE
     Dosage: 1.5 GRAM PER SQUARE METRE
  11. MESNA [Concomitant]
     Active Substance: MESNA
     Dosage: 500 MILLIGRAM/SQ. METER
  12. FLUDARABINE [Concomitant]
     Active Substance: FLUDARABINE PHOSPHATE
     Dosage: 30 MILLIGRAM/SQ. METER
  13. CIPROFLOXACIN [Concomitant]
     Active Substance: CIPROFLOXACIN
     Dosage: 500 MILLIGRAM, BID
  14. FLUCONAZOLE [Concomitant]
     Active Substance: FLUCONAZOLE
     Dosage: 100 MILLIGRAM, QD
  15. ACYCLOVIR [Concomitant]
     Active Substance: ACYCLOVIR
     Dosage: 400 MILLIGRAM, BID

REACTIONS (3)
  - Febrile neutropenia [Unknown]
  - Juvenile idiopathic arthritis [Recovered/Resolved]
  - Vomiting [Unknown]
